FAERS Safety Report 20734777 (Version 1)
Quarter: 2022Q2

REPORT INFORMATION
  Report Type: Spontaneous
  Country: DE (occurrence: DE)
  Receive Date: 20220421
  Receipt Date: 20220421
  Transmission Date: 20220721
  Serious: Yes (Disabling, Other)
  Sender: FDA-Public Use
  Company Number: DE-NOVARTISPH-NVSC2022DE090232

PATIENT
  Age: 80 Year
  Sex: Male

DRUGS (1)
  1. TAMSULOSIN [Suspect]
     Active Substance: TAMSULOSIN
     Indication: Nocturia
     Dosage: 0.4 MG, QD
     Route: 048
     Dates: start: 202109

REACTIONS (2)
  - Acne pustular [Not Recovered/Not Resolved]
  - Pain [Not Recovered/Not Resolved]
